FAERS Safety Report 12795552 (Version 1)
Quarter: 2016Q3

REPORT INFORMATION
  Report Type: Spontaneous
  Country: US (occurrence: US)
  Receive Date: 20160929
  Receipt Date: 20160929
  Transmission Date: 20161109
  Serious: No
  Sender: FDA-Public Use
  Company Number: US-BAYER-2016-186710

PATIENT
  Age: 61 Year
  Sex: Female

DRUGS (1)
  1. CLIMARA [Suspect]
     Active Substance: ESTRADIOL
     Dosage: 0.05 MG, CONT
     Route: 062
     Dates: start: 201507

REACTIONS (4)
  - Device material issue [None]
  - Incorrect dose administered [Unknown]
  - Product adhesion issue [Unknown]
  - Device use issue [Unknown]

NARRATIVE: CASE EVENT DATE: 201607
